FAERS Safety Report 5117077-0 (Version None)
Quarter: 2006Q3

REPORT INFORMATION
  Report Type: 
  Country: None (occurrence: None)
  Receive Date: 20060925
  Receipt Date: 20060911
  Transmission Date: 20061208
  Serious: Yes (Hospitalization)
  Sender: FDA-Public Use
  Company Number: 2006101778

PATIENT
  Age: 56 Year
  Sex: Male

DRUGS (2)
  1. SUTENT [Suspect]
     Indication: METASTATIC RENAL CELL CARCINOMA
     Dosage: SEE IMAGE, ORAL
     Route: 048
     Dates: start: 20060714
  2. SUTENT [Suspect]
     Indication: METASTATIC RENAL CELL CARCINOMA
     Dosage: SEE IMAGE, ORAL
     Route: 048
     Dates: start: 20060831

REACTIONS (5)
  - CHEST PAIN [None]
  - DEHYDRATION [None]
  - JAUNDICE [None]
  - LOWER RESPIRATORY TRACT INFECTION [None]
  - THYROID FUNCTION TEST ABNORMAL [None]
